FAERS Safety Report 7623754-X (Version None)
Quarter: 2011Q4

REPORT INFORMATION
  Report Type: 
  Country: None (occurrence: None)
  Receive Date: 20110720
  Receipt Date: 20110712
  Transmission Date: 20120403
  Serious: Yes (Disabling)
  Sender: FDA-Public Use
  Company Number: JP-GLAXOSMITHKLINE-B0727928A

PATIENT
  Sex: Male

DRUGS (9)
  1. FAMOTIDINE [Concomitant]
     Route: 048
  2. LEXIN [Concomitant]
     Indication: AMYOTROPHIC LATERAL SCLEROSIS
     Dosage: 400MG PER DAY
     Route: 048
     Dates: start: 20100101
  3. AMLODIPINE [Concomitant]
     Indication: HYPERTENSION
     Dosage: 5MG PER DAY
     Route: 048
  4. LIORESAL [Concomitant]
     Route: 048
  5. ATP [Concomitant]
     Indication: AMYOTROPHIC LATERAL SCLEROSIS
     Dosage: 180MG PER DAY
     Route: 048
     Dates: start: 20100101
  6. LOXOPROFEN [Concomitant]
     Indication: PAIN
     Dosage: 180MG PER DAY
     Route: 048
  7. LAMIVUDINE (EPIVIR HBV) [Suspect]
     Indication: HEPATITIS B
     Dosage: 100MG PER DAY
     Route: 048
     Dates: start: 20040101
  8. RILUTEK [Concomitant]
     Indication: AMYOTROPHIC LATERAL SCLEROSIS
     Dosage: 100MG PER DAY
     Route: 048
     Dates: start: 20100101
  9. HEPSERA [Suspect]
     Indication: HEPATITIS B
     Dosage: 10MG PER DAY
     Route: 048
     Dates: start: 20050530

REACTIONS (4)
  - CHEST PAIN [None]
  - BLOOD ALKALINE PHOSPHATASE INCREASED [None]
  - MULTIPLE FRACTURES [None]
  - OSTEOMALACIA [None]
